FAERS Safety Report 15962463 (Version 3)
Quarter: 2019Q1

REPORT INFORMATION
  Report Type: Report from Study
  Country: PL (occurrence: PL)
  Receive Date: 20190214
  Receipt Date: 20190314
  Transmission Date: 20190417
  Serious: Yes (Other)
  Sender: FDA-Public Use
  Company Number: PL-JNJFOC-20190208409

PATIENT
  Age: 70 Year
  Sex: Male
  Weight: 79 kg

DRUGS (1)
  1. IMBRUVICA [Suspect]
     Active Substance: IBRUTINIB
     Indication: CHRONIC LYMPHOCYTIC LEUKAEMIA
     Route: 048
     Dates: start: 20190113

REACTIONS (5)
  - Angina bullosa haemorrhagica [Recovered/Resolved]
  - Dizziness [Not Recovered/Not Resolved]
  - Leukocytosis [Not Recovered/Not Resolved]
  - Haemoglobin decreased [Unknown]
  - Peripheral coldness [Unknown]
